FAERS Safety Report 8301126-2 (Version None)
Quarter: 2012Q2

REPORT INFORMATION
  Report Type: 
  Country: None (occurrence: None)
  Receive Date: 20120420
  Receipt Date: 20120409
  Transmission Date: 20120825
  Serious: Yes (Other)
  Sender: FDA-Public Use
  Company Number: JP-VERTEX PHARMACEUTICALS INC.-AE-2012-005213

PATIENT
  Age: 60 Year
  Sex: Male

DRUGS (18)
  1. REBETOL [Concomitant]
     Indication: HEPATITIS C
     Route: 048
     Dates: start: 20120124, end: 20120215
  2. ROHYPNOL [Concomitant]
     Route: 048
  3. REBETOL [Concomitant]
     Route: 048
     Dates: start: 20120223
  4. POLARAMINE [Concomitant]
     Dates: start: 20120308
  5. TELAVIC (TELAPREVIR) [Suspect]
     Indication: HEPATITIS C
     Route: 048
     Dates: start: 20120124
  6. DEPAS [Concomitant]
     Route: 048
  7. CALBLOCK [Concomitant]
     Route: 048
  8. BIO-THREE (CLOSTRIDIUM BUTYRICUM COMBINED DRUG) [Concomitant]
     Route: 048
  9. CANDESARTAN CILEXETIL [Concomitant]
     Route: 048
  10. OMEPRAZOLE [Concomitant]
     Route: 048
  11. ALLOPURINOL [Concomitant]
     Route: 048
     Dates: start: 20120308
  12. NEOPHAGEN [Concomitant]
     Route: 048
  13. REBETOL [Concomitant]
     Route: 048
     Dates: start: 20120216, end: 20120222
  14. HALCION [Concomitant]
     Route: 048
  15. URSO 250 [Concomitant]
     Indication: HEPATITIS C
     Route: 048
     Dates: start: 20101005
  16. YOUCOBAL [Concomitant]
     Route: 048
  17. PEG-INTRON [Concomitant]
     Indication: HEPATITIS C
     Route: 058
     Dates: start: 20120124
  18. ADENOSINE [Concomitant]
     Route: 048

REACTIONS (1)
  - RASH [None]
